FAERS Safety Report 6306726-7 (Version None)
Quarter: 2009Q3

REPORT INFORMATION
  Report Type: 
  Country: None (occurrence: None)
  Receive Date: 20090812
  Receipt Date: 20090615
  Transmission Date: 20100115
  Serious: No
  Sender: FDA-Public Use
  Company Number: A0791562A

PATIENT
  Age: 67 Year
  Sex: Male

DRUGS (4)
  1. VERAMYST [Suspect]
     Route: 045
     Dates: start: 20090608, end: 20090612
  2. METOPROLOL [Concomitant]
  3. DILTIAZEM [Concomitant]
  4. LORAZEPAM [Concomitant]

REACTIONS (10)
  - DERMATITIS CONTACT [None]
  - HYPERSENSITIVITY [None]
  - NASAL CONGESTION [None]
  - NASAL DISCOMFORT [None]
  - NASAL ULCER [None]
  - NAUSEA [None]
  - OROPHARYNGEAL PAIN [None]
  - PHARYNGEAL ERYTHEMA [None]
  - SINUS HEADACHE [None]
  - SPEECH DISORDER [None]
